FAERS Safety Report 6616673-9 (Version None)
Quarter: 2010Q1

REPORT INFORMATION
  Report Type: 
  Country: None (occurrence: None)
  Receive Date: 20100223
  Receipt Date: 20091106
  Transmission Date: 20100710
  Serious: No
  Sender: FDA-Public Use
  Company Number: 8054287

PATIENT
  Sex: Female
  Weight: 79.5 kg

DRUGS (3)
  1. CERTOLIZUMAB PEGOL (UCB, INC) [Suspect]
     Indication: CROHN'S DISEASE
     Dosage: 400 MG EVERY28 DAYS ONCE MONTHLY SUBCUTANEOUS
     Route: 058
     Dates: start: 20090801, end: 20091023
  2. PURINETHOL [Concomitant]
  3. ASACOL [Concomitant]

REACTIONS (3)
  - ANXIETY [None]
  - ARTHRALGIA [None]
  - OEDEMA PERIPHERAL [None]
